FAERS Safety Report 8728357 (Version 2)
Quarter: 2012Q4

REPORT INFORMATION
  Report Type: 
  Country: US (occurrence: US)
  Receive Date: 20120817
  Receipt Date: 20121227
  Transmission Date: 20130627
  Serious: Yes (Hospitalization, Other)
  Sender: FDA-Public Use
  Company Number: US-BAYER-2012-082779

PATIENT
  Age: 36 Year
  Sex: Female
  Weight: 64.85 kg

DRUGS (32)
  1. YAZ [Suspect]
     Indication: CONTRACEPTION
     Dosage: UNK
     Dates: start: 2005, end: 20090730
  2. YAZ [Suspect]
     Indication: PREMENSTRUAL DYSPHORIC DISORDER
  3. YAZ [Suspect]
     Indication: PREMENSTRUAL SYNDROME
  4. YASMIN [Suspect]
     Indication: PREMENSTRUAL DYSPHORIC DISORDER
  5. YASMIN [Suspect]
     Indication: PREMENSTRUAL SYNDROME
  6. YASMIN [Suspect]
     Indication: CONTRACEPTION
  7. INHALER [Concomitant]
     Indication: ASTHMA
     Dosage: UNK
     Dates: start: 1990
  8. LIPITOR [Concomitant]
     Dosage: 20 mg, UNK
  9. CEFUROXIME AXETIL [Concomitant]
  10. ALBUTEROL [Concomitant]
  11. LEXAPRO [Concomitant]
     Dosage: 20 mg, UNK
  12. GLIMEPIRIDE [Concomitant]
     Dosage: 4 mg, UNK
  13. IMITREX [Concomitant]
  14. AVANDIA [Concomitant]
     Indication: DIABETES
     Dosage: 8 mg, UNK
     Route: 048
  15. FLOVENT [Concomitant]
     Indication: ASTHMA
  16. SEREVENT [Concomitant]
     Indication: ASTHMA
  17. TORADOL [Concomitant]
     Dosage: 30 mg, UNK
     Route: 042
  18. PHENERGAN [Concomitant]
     Dosage: 12.5 mg, UNK
  19. PROVENTIL [Concomitant]
  20. TOPIRAMATE [Concomitant]
  21. GLUCOPHAGE [Concomitant]
     Indication: DIABETES
     Route: 048
  22. DILAUDID [Concomitant]
     Dosage: 3 mg, UNK
     Route: 042
  23. PERCOCET [Concomitant]
     Indication: PAIN
     Dosage: 5/325 , 2 tablets given to go; 1-2 tablets q 4 hours prn
     Route: 048
  24. OXYCODONE/APAP [Concomitant]
  25. IBUPROFEN [Concomitant]
     Dosage: 800 mg, UNK
  26. TOPAMAX [Concomitant]
     Indication: MIGRAINE
     Dosage: 100 mg, HS
     Route: 048
  27. TRAZODONE [Concomitant]
     Indication: SLEEP DISORDER NOS
     Dosage: 50 mg, HS
     Route: 048
  28. AMARYL [Concomitant]
     Indication: DIABETES
     Dosage: 8 mg, OM
     Route: 048
  29. METFORMIN [Concomitant]
     Indication: DIABETES
     Dosage: 500 mg, BID
     Route: 048
  30. NEXIUM [Concomitant]
     Indication: GERD
     Dosage: 40 mg, OM
  31. FERROUS SULFATE [Concomitant]
  32. PRILOSEC [Concomitant]

REACTIONS (12)
  - Cerebrovascular accident [None]
  - Renal vein thrombosis [None]
  - Renal failure [None]
  - Hemiparesis [None]
  - Tremor [None]
  - Pain [None]
  - Injury [None]
  - General physical health deterioration [None]
  - Pain [None]
  - Anxiety [None]
  - Emotional distress [None]
  - Off label use [None]
